FAERS Safety Report 9803500 (Version 2)
Quarter: 2014Q1

REPORT INFORMATION
  Report Type: Spontaneous
  Country: IT (occurrence: IT)
  Receive Date: 20140108
  Receipt Date: 20140319
  Transmission Date: 20141002
  Serious: Yes (Hospitalization)
  Sender: FDA-Public Use
  Company Number: IT-B.I. PHARMACEUTICALS,INC./RIDGEFIELD-2014-BI-00646YA

PATIENT
  Age: 75 Year
  Sex: Male

DRUGS (11)
  1. TAMSULOSINA [Suspect]
     Indication: BENIGN PROSTATIC HYPERPLASIA
     Dosage: 0.4 MG
     Route: 048
     Dates: start: 20131228, end: 20131228
  2. NOVONORM (REPAGLINIDE) [Concomitant]
     Route: 065
  3. AMIODAR (AMIODARONE HYDROCHLORIDE) [Concomitant]
     Route: 065
  4. COUMADIN [Concomitant]
     Dosage: STRENGTH: 5MG
     Route: 065
  5. CONGESCOR (BISOPROLOL) [Concomitant]
     Dosage: STRENGTH: 1.25MG
     Route: 048
  6. CARDIRENE (ACETYLSALICYLATE LYSINE) [Concomitant]
     Route: 065
  7. RANIDIL (RANITIDINE HYDROCHLORIDE) [Concomitant]
     Route: 065
  8. LASIX [Concomitant]
     Route: 065
  9. LUVION [Concomitant]
     Route: 065
  10. CRESTOR (ROSUVASTATIN CALCIUM) [Concomitant]
     Route: 065
  11. OLPRESS (OLMESARTAN MEDOXOMIL) [Concomitant]
     Route: 065

REACTIONS (2)
  - Presyncope [Recovered/Resolved]
  - Hypotension [Recovered/Resolved]
